FAERS Safety Report 10043403 (Version 1)
Quarter: 2014Q1

REPORT INFORMATION
  Report Type: Spontaneous
  Country: US (occurrence: US)
  Receive Date: 20140328
  Receipt Date: 20140328
  Transmission Date: 20141002
  Serious: No
  Sender: FDA-Public Use
  Company Number: US-PFIZER INC-2014087956

PATIENT
  Sex: Male

DRUGS (3)
  1. LYRICA [Suspect]
     Indication: DIABETIC NEUROPATHY
     Dosage: 150 MG, UNK
  2. LYRICA [Suspect]
     Dosage: 300 MG, UNK
  3. LYRICA [Suspect]
     Dosage: 600 MG, UNK

REACTIONS (1)
  - Drug ineffective [Unknown]
